FAERS Safety Report 5509486-2 (Version None)
Quarter: 2007Q4

REPORT INFORMATION
  Report Type: 
  Country: None (occurrence: None)
  Receive Date: 20071107
  Receipt Date: 20071026
  Transmission Date: 20080405
  Serious: Yes (Other)
  Sender: FDA-Public Use
  Company Number: GB-PFIZER INC-2007086697

PATIENT
  Sex: Female

DRUGS (7)
  1. CHAMPIX [Suspect]
     Indication: SMOKING CESSATION THERAPY
     Route: 048
  2. VALPROATE SODIUM [Concomitant]
     Indication: DEPRESSION
  3. RISPERIDONE [Concomitant]
  4. CITALOPRAM [Concomitant]
  5. VENTOLIN [Concomitant]
  6. FLIXOTIDE ^GLAXO WELLCOME^ [Concomitant]
  7. GLUCOSAMINE [Concomitant]

REACTIONS (3)
  - DEPRESSION [None]
  - MALAISE [None]
  - SOMNOLENCE [None]
